FAERS Safety Report 10776132 (Version 1)
Quarter: 2015Q1

REPORT INFORMATION
  Report Type: Spontaneous
  Country: US (occurrence: US)
  Receive Date: 20150209
  Receipt Date: 20150209
  Transmission Date: 20150721
  Serious: No
  Sender: FDA-Public Use
  Company Number: US-GLAXOSMITHKLINE-A1076592A

PATIENT

DRUGS (9)
  1. BENLYSTA [Suspect]
     Active Substance: BELIMUMAB
     Indication: SYSTEMIC LUPUS ERYTHEMATOSUS
     Dosage: UNKNOWN
     Route: 042
     Dates: start: 201401, end: 201407
  2. MORPHINE [Concomitant]
     Active Substance: MORPHINE
  3. ALPRAZOLAM. [Concomitant]
     Active Substance: ALPRAZOLAM
  4. GABAPENTIN. [Concomitant]
     Active Substance: GABAPENTIN
  5. GLIMEPIRIDE. [Concomitant]
     Active Substance: GLIMEPIRIDE
  6. HYDROXYCHLOROQUINE [Concomitant]
     Active Substance: HYDROXYCHLOROQUINE
  7. TIZANIDINE (TIZANIDINE) [Concomitant]
     Active Substance: TIZANIDINE
  8. INSULIN [Concomitant]
     Active Substance: INSULIN NOS
  9. PREDNISONE. [Concomitant]
     Active Substance: PREDNISONE

REACTIONS (2)
  - Confusional state [Recovering/Resolving]
  - Repetitive speech [Recovering/Resolving]

NARRATIVE: CASE EVENT DATE: 2014
